FAERS Safety Report 5234786-3 (Version None)
Quarter: 2007Q1

REPORT INFORMATION
  Report Type: 
  Country: None (occurrence: None)
  Receive Date: 20070209
  Receipt Date: 20070201
  Transmission Date: 20070707
  Serious: Yes (Other)
  Sender: FDA-Public Use
  Company Number: BR-PFIZER INC-2006145479

PATIENT
  Age: 66 Year
  Sex: Male

DRUGS (2)
  1. XALATAN [Suspect]
     Indication: GLAUCOMA
     Route: 047
     Dates: start: 20060501, end: 20061101
  2. OCUPRESS [Concomitant]
     Route: 047
     Dates: start: 20060501, end: 20061101

REACTIONS (1)
  - CATARACT OPERATION [None]
